FAERS Safety Report 18639988 (Version 1)
Quarter: 2020Q4

REPORT INFORMATION
  Report Type: Spontaneous
  Country: US (occurrence: US)
  Receive Date: 20201220
  Receipt Date: 20201220
  Transmission Date: 20210114
  Serious: No
  Sender: FDA-Public Use
  Company Number: US-PACIRA-202000276

PATIENT

DRUGS (2)
  1. EXPAREL [Suspect]
     Active Substance: BUPIVACAINE
     Indication: POSTOPERATIVE ANALGESIA
     Dosage: ADMIXTURE OF EXPAREL AND 0.25% MARCAINE WITH EPINEPHRINE, MIXTURE WAS A 1:1 RATIO
     Route: 065
  2. MARCAINE [Suspect]
     Active Substance: BUPIVACAINE HYDROCHLORIDE
     Indication: POSTOPERATIVE ANALGESIA
     Dosage: ADMIXTURE 0.25% MARCAINE WITH EPINEPHRINE AND EXPAREL, MIXTURE WAS A 1:1 RATIO
     Route: 065

REACTIONS (1)
  - Labelled drug-drug interaction medication error [Unknown]
